FAERS Safety Report 23530224 (Version 1)
Quarter: 2024Q1

REPORT INFORMATION
  Report Type: Report from Study
  Country: US (occurrence: US)
  Receive Date: 20240216
  Receipt Date: 20240216
  Transmission Date: 20240410
  Serious: Yes (Disabling)
  Sender: FDA-Public Use
  Company Number: US-BoehringerIngelheim-2023-BI-263630

PATIENT
  Age: 68 Year
  Sex: Male

DRUGS (2)
  1. OFEV [Suspect]
     Active Substance: NINTEDANIB
     Indication: Idiopathic pulmonary fibrosis
     Dosage: APART WITH FOOD
     Route: 048
     Dates: start: 2021
  2. OFEV [Suspect]
     Active Substance: NINTEDANIB
     Dosage: APART WITH FOOD
     Route: 048

REACTIONS (9)
  - Illness [Recovered/Resolved]
  - Diarrhoea [Not Recovered/Not Resolved]
  - Dizziness [Not Recovered/Not Resolved]
  - Drug intolerance [Unknown]
  - Hypertension [Unknown]
  - Depression [Unknown]
  - Productive cough [Unknown]
  - Gastrooesophageal reflux disease [Unknown]
  - Nausea [Unknown]

NARRATIVE: CASE EVENT DATE: 20230101
